FAERS Safety Report 9947035 (Version 1)
Quarter: 2014Q1

REPORT INFORMATION
  Report Type: Report from Study
  Country: US (occurrence: US)
  Receive Date: 20140303
  Receipt Date: 20140303
  Transmission Date: 20141002
  Serious: No
  Sender: FDA-Public Use
  Company Number: US-ABBVIE-13P-163-1062256-00

PATIENT
  Age: 65 Year
  Sex: Female

DRUGS (20)
  1. HUMIRA [Suspect]
     Indication: PSORIASIS
     Dates: start: 20121018
  2. WELLBUTRIN [Concomitant]
     Indication: DEPRESSION
     Dosage: 300MG DAILY
  3. LEXAPRO [Concomitant]
     Indication: DEPRESSION
     Dosage: 10MG DAILY
  4. BYSTOLIC [Concomitant]
     Indication: MYOCARDIAL INFARCTION
     Dosage: 10MG DAILY
  5. SIMVASTATIN [Concomitant]
     Indication: BLOOD CHOLESTEROL INCREASED
     Dosage: 40MG DAILY
  6. SIMVASTATIN [Concomitant]
     Indication: HYPERTENSION
  7. GARLIC [Concomitant]
     Indication: PHYTOTHERAPY
     Dosage: DAILY
  8. FISH OIL [Concomitant]
     Indication: VITAMIN SUPPLEMENTATION
     Dosage: DAILY
  9. RED NIACIN [Concomitant]
     Indication: VITAMIN SUPPLEMENTATION
     Dosage: DAILY
  10. OTHER VITAMINS [Concomitant]
     Indication: VITAMIN SUPPLEMENTATION
     Dosage: DAILY
  11. BABAY ASA [Concomitant]
     Indication: CARDIOVASCULAR EVENT PROPHYLAXIS
     Dosage: 81MG DAILY
  12. BABAY ASA [Concomitant]
     Indication: HYPERTENSION
  13. BABAY ASA [Concomitant]
     Indication: VITAMIN SUPPLEMENTATION
  14. SEROQUEL [Concomitant]
     Indication: INSOMNIA
     Dosage: AT HOUR OF SLEEP
  15. SEROQUEL [Concomitant]
     Indication: HYPERTENSION
  16. SEROQUEL [Concomitant]
     Indication: VITAMIN SUPPLEMENTATION
  17. CLARITIN [Concomitant]
     Indication: HYPERSENSITIVITY
     Dosage: DAILY
  18. CLARITIN [Concomitant]
     Indication: HYPERTENSION
  19. CLARITIN [Concomitant]
     Indication: VITAMIN SUPPLEMENTATION
  20. MULTI VIT [Concomitant]
     Indication: VITAMIN SUPPLEMENTATION
     Dosage: DAILY

REACTIONS (4)
  - Nail disorder [Not Recovered/Not Resolved]
  - Alopecia [Not Recovered/Not Resolved]
  - Psoriasis [Not Recovered/Not Resolved]
  - Pruritus generalised [Not Recovered/Not Resolved]
